FAERS Safety Report 8766270 (Version 3)
Quarter: 2013Q1

REPORT INFORMATION
  Report Type: Spontaneous
  Country: GB (occurrence: GB)
  Receive Date: 20120904
  Receipt Date: 20130321
  Transmission Date: 20140127
  Serious: Yes (Other)
  Sender: FDA-Public Use
  Company Number: GB-ASTRAZENECA-2012SE64549

PATIENT
  Age: 67 Year
  Sex: Male
  Weight: 87.2 kg

DRUGS (10)
  1. NEXIUM [Suspect]
     Indication: GASTROOESOPHAGEAL REFLUX DISEASE
     Route: 048
     Dates: start: 20041202, end: 201209
  2. NEXIUM [Suspect]
     Indication: GASTROOESOPHAGEAL REFLUX DISEASE
     Route: 048
     Dates: end: 2012
  3. PHENYTOIN [Concomitant]
     Dates: start: 2012
  4. CITALOPRAM [Concomitant]
     Dates: start: 2012
  5. PARACETAMOL [Concomitant]
     Indication: OSTEOARTHRITIS
     Route: 048
     Dates: start: 2005
  6. BENDROFLUMETHIAZIDE [Concomitant]
     Dosage: 2-5 MG DAILY
     Route: 048
     Dates: start: 2010
  7. ALISKIREN [Concomitant]
     Indication: HYPERTENSION
     Route: 048
     Dates: start: 201002, end: 201101
  8. DUTASTERIDE [Concomitant]
     Indication: HYPERTENSION
     Route: 048
     Dates: start: 200906, end: 201006
  9. TAMSULOSIN [Concomitant]
     Indication: HYPERTENSION
     Route: 048
     Dates: start: 201007, end: 201011
  10. CLONIDINE [Concomitant]
     Indication: HYPERTENSION
     Route: 048
     Dates: start: 200501

REACTIONS (19)
  - Vascular dementia [Unknown]
  - Musculoskeletal disorder [Unknown]
  - Dysuria [Unknown]
  - Pain [Recovered/Resolved]
  - Chest pain [Recovered/Resolved]
  - Pain in extremity [Unknown]
  - Poor quality sleep [Unknown]
  - Headache [Unknown]
  - Abdominal pain upper [Recovered/Resolved]
  - Insomnia [Unknown]
  - Dry mouth [Unknown]
  - Agitation [Unknown]
  - Oral candidiasis [Unknown]
  - Aggression [Unknown]
  - Malaise [Unknown]
  - Depression [Unknown]
  - Vertigo [Unknown]
  - Confusional state [Unknown]
  - Abdominal discomfort [Recovered/Resolved]
